FAERS Safety Report 5450357-8 (Version None)
Quarter: 2007Q3

REPORT INFORMATION
  Report Type: 
  Country: None (occurrence: None)
  Receive Date: 20070912
  Receipt Date: 20070831
  Transmission Date: 20080115
  Serious: Yes (Other)
  Sender: FDA-Public Use
  Company Number: US-PFIZER INC-2007073618

PATIENT
  Sex: Female
  Weight: 67 kg

DRUGS (6)
  1. LYRICA [Suspect]
     Indication: MUSCLE SPASMS
  2. NORVASC [Concomitant]
  3. HUMALOG [Concomitant]
  4. AVANDIA [Concomitant]
  5. HYZAAR [Concomitant]
  6. VITAMINS [Concomitant]

REACTIONS (2)
  - DELIRIUM [None]
  - PAIN [None]
